FAERS Safety Report 4472557-6 (Version None)
Quarter: 2004Q4

REPORT INFORMATION
  Report Type: 
  Country: None (occurrence: None)
  Receive Date: 20041008
  Receipt Date: 20040930
  Transmission Date: 20050328
  Serious: Yes (Death)
  Sender: FDA-Public Use
  Company Number: 177381

PATIENT
  Age: 49 Year
  Sex: Male
  Weight: 74.8435 kg

DRUGS (12)
  1. AVONEX [Suspect]
     Indication: MULTIPLE SCLEROSIS
     Dosage: 30 MCG QW IM
     Route: 030
     Dates: start: 19960101, end: 20020201
  2. COPAXONE [Concomitant]
  3. NEURONTIN [Concomitant]
  4. SONATA [Concomitant]
  5. PRILOSEC [Concomitant]
  6. BACTRIM DS [Concomitant]
  7. MACRODDANTIN [Concomitant]
  8. BECLOFEN [Concomitant]
  9. COLACE [Concomitant]
  10. CELEBREX [Concomitant]
  11. CELEXA [Concomitant]
  12. FLOMAX ^CHIESI^ [Concomitant]

REACTIONS (5)
  - CONDITION AGGRAVATED [None]
  - HYPOTHYROIDISM [None]
  - MULTIPLE SCLEROSIS [None]
  - MYOCARDIAL INFARCTION [None]
  - THROMBOSIS [None]
